FAERS Safety Report 4660250-6 (Version None)
Quarter: 2005Q2

REPORT INFORMATION
  Report Type: 
  Country: None (occurrence: None)
  Receive Date: 20050420
  Receipt Date: 20040721
  Transmission Date: 20051028
  Serious: Yes (Other)
  Sender: FDA-Public Use
  Company Number: TEST00204002449

PATIENT
  Sex: Male

DRUGS (1)
  1. ANDROGEL [Suspect]
     Indication: ILL-DEFINED DISORDER
     Dosage: UNKNOWN DAILY TRANSCUTANEOUS

REACTIONS (2)
  - DIHYDROTESTOSTERONE INCREASED [None]
  - PROSTATE CANCER [None]
